FAERS Safety Report 5108917-X (Version None)
Quarter: 2006Q3

REPORT INFORMATION
  Report Type: 
  Country: None (occurrence: None)
  Receive Date: 20060915
  Receipt Date: 20060915
  Transmission Date: 20061208
  Serious: No
  Sender: FDA-Public Use
  Company Number: None

PATIENT
  Sex: Male
  Weight: 65.7716 kg

DRUGS (31)
  1. ANDRODERM [Suspect]
     Indication: ANDROGEN THERAPY
     Dosage: 5 MG Q AM TRANSDERMAL
     Route: 062
     Dates: start: 20051231, end: 20060327
  2. LEVOXYL [Concomitant]
  3. NORVASC [Concomitant]
  4. NORPACE [Concomitant]
  5. HYDROCHLOROTHIAZIDE [Concomitant]
  6. LIPITOR [Concomitant]
  7. SINGULAIR [Concomitant]
  8. FOSAMAX [Concomitant]
  9. ASPIRIN [Concomitant]
  10. AGGRENOX [Concomitant]
  11. TYLINOL [Concomitant]
  12. NEXIUM [Concomitant]
  13. MOBIC [Concomitant]
  14. MICARDIS [Concomitant]
  15. ANDROGEL [Concomitant]
  16. BECHONASE-AQ-NASAL [Concomitant]
  17. ASTHMANEX [Concomitant]
  18. ALBUTEROL [Concomitant]
  19. OXYMETAZOLIN [Concomitant]
  20. SPIRIVA [Concomitant]
  21. AMBIEN [Concomitant]
  22. BENADRYL [Concomitant]
  23. OSCAL [Concomitant]
  24. VIT D + A [Concomitant]
  25. CALCIUM GLUCONATE [Concomitant]
  26. VIT. E. [Concomitant]
  27. B12 [Concomitant]
  28. VIT C [Concomitant]
  29. FOLIC ACID [Concomitant]
  30. MULTIVITS [Concomitant]
  31. AMLACTIN XL - MOISTERIZING CREAM [Concomitant]

REACTIONS (2)
  - BURNS THIRD DEGREE [None]
  - CAUSTIC INJURY [None]
